FAERS Safety Report 23195962 (Version 1)
Quarter: 2023Q4

REPORT INFORMATION
  Report Type: Spontaneous
  Country: GR (occurrence: GR)
  Receive Date: 20231117
  Receipt Date: 20231117
  Transmission Date: 20240110
  Serious: Yes (Other)
  Sender: FDA-Public Use
  Company Number: None

PATIENT
  Age: 75 Year
  Sex: Female
  Weight: 73 kg

DRUGS (5)
  1. SIMVASTATIN [Suspect]
     Active Substance: SIMVASTATIN
     Indication: Dyslipidaemia
     Dosage: UNIT DOSE:10MG,DURATION:52 DAYS
     Dates: start: 20230403, end: 20230525
  2. EZETIMIBE [Suspect]
     Active Substance: EZETIMIBE
     Indication: Dyslipidaemia
     Dosage: UNIT SOE:10MG,DURATION:67 DAYS
     Dates: start: 20210604, end: 20210810
  3. PRAVASTATIN [Suspect]
     Active Substance: PRAVASTATIN
     Indication: Dyslipidaemia
     Dosage: UNIT DOSE:20MG,DURATION:84 DAYS
     Dates: start: 20220427, end: 20220720
  4. PRAVASTATIN [Suspect]
     Active Substance: PRAVASTATIN
     Indication: Dyslipidaemia
     Dosage: UNIT DOSE:40MG,DURATION:31 DAYS
     Dates: start: 20221114, end: 20221215
  5. ATORVASTATIN [Suspect]
     Active Substance: ATORVASTATIN
     Indication: Dyslipidaemia
     Dosage: UNIT DOSE:10MG,DURATION:15 DAYS
     Dates: start: 20230313, end: 20230328

REACTIONS (3)
  - Myalgia [Unknown]
  - Pain [Unknown]
  - Diarrhoea [Unknown]
